FAERS Safety Report 4762943-9 (Version None)
Quarter: 2005Q3

REPORT INFORMATION
  Report Type: 
  Country: None (occurrence: None)
  Receive Date: 20050907
  Receipt Date: 20050823
  Transmission Date: 20060218
  Serious: Yes (Other)
  Sender: FDA-Public Use
  Company Number: GBWYE926823AUG05

PATIENT

DRUGS (4)
  1. ENBREL [Suspect]
     Indication: RHEUMATOID ARTHRITIS
     Dosage: 25MG FREQUENCY UNSPECIFIED
     Route: 058
     Dates: start: 20030613, end: 20050101
  2. DICLOFENAC [Concomitant]
     Indication: RHEUMATOID ARTHRITIS
     Dosage: 50MG FREQUENCY UNSPECIFIED
     Route: 048
     Dates: start: 20000101
  3. NEXIUM [Concomitant]
     Indication: DYSPEPSIA
     Dosage: 20 MG EVERY 1 PRN
     Route: 048
     Dates: start: 20040101
  4. METOCLOPRAMIDE [Concomitant]
     Indication: DYSPEPSIA
     Dosage: 10 MG EVERY 1 PRN
     Route: 048
     Dates: start: 20040101

REACTIONS (2)
  - PURPURA [None]
  - VASCULITIC RASH [None]
